FAERS Safety Report 14195581 (Version 1)
Quarter: 2017Q4

REPORT INFORMATION
  Report Type: Spontaneous
  Country: US (occurrence: US)
  Receive Date: 20171116
  Receipt Date: 20171116
  Transmission Date: 20180321
  Serious: No
  Sender: FDA-Public Use
  Company Number: US-COLLEGIUM PHARMACEUTICAL, INC.-2017CGM00097

PATIENT
  Age: 37 Year
  Sex: Male
  Weight: 80.73 kg

DRUGS (2)
  1. GABAPENTIN. [Concomitant]
     Active Substance: GABAPENTIN
     Dosage: 600 MG, 2X/DAY
  2. XTAMPZA ER [Suspect]
     Active Substance: OXYCODONE
     Indication: LUMBAR RADICULOPATHY
     Dosage: 9 MG, 2X/DAY
     Route: 048
     Dates: start: 20170831, end: 20170922

REACTIONS (3)
  - Nausea [Unknown]
  - Gastrooesophageal reflux disease [Unknown]
  - Insomnia [Unknown]

NARRATIVE: CASE EVENT DATE: 2017
